FAERS Safety Report 4577483-X (Version None)
Quarter: 2005Q1

REPORT INFORMATION
  Report Type: 
  Country: None (occurrence: None)
  Receive Date: 20050208
  Receipt Date: 20050127
  Transmission Date: 20050727
  Serious: Yes (Other)
  Sender: FDA-Public Use
  Company Number: 2005020304

PATIENT
  Age: 52 Year
  Sex: Female

DRUGS (1)
  1. AROMASIN [Suspect]
     Indication: BREAST CANCER
     Dosage: (1 TABLET DAILY), ORAL
     Route: 048
     Dates: start: 20021001

REACTIONS (2)
  - BONE NEOPLASM [None]
  - MOVEMENT DISORDER [None]
